FAERS Safety Report 5137967-2 (Version None)
Quarter: 2006Q4

REPORT INFORMATION
  Report Type: 
  Country: None (occurrence: None)
  Receive Date: 20061030
  Receipt Date: 20020514
  Transmission Date: 20070319
  Serious: Yes (Death, Hospitalization)
  Sender: FDA-Public Use
  Company Number: ZA-AVENTIS-200213759GDDC

PATIENT
  Sex: Female
  Weight: 82 kg

DRUGS (9)
  1. TAXOTERE [Suspect]
     Indication: BREAST CANCER
     Route: 042
     Dates: start: 20020404, end: 20020424
  2. TAXOTERE [Suspect]
  3. HERCEPTIN [Suspect]
     Indication: BREAST CANCER
     Route: 042
     Dates: start: 20020403, end: 20020403
  4. HERCEPTIN [Suspect]
     Route: 042
     Dates: end: 20020506
  5. CARBOPLATIN [Suspect]
     Indication: BREAST CANCER
     Dosage: DOSE: AUC=6
     Route: 042
     Dates: start: 20020404, end: 20020424
  6. GLUCOPHAGE [Concomitant]
     Indication: DIABETES MELLITUS
     Dates: start: 19700101, end: 20020511
  7. KYTRIL                             /01178101/ [Concomitant]
     Indication: VOMITING
     Route: 042
     Dates: start: 20020424, end: 20020424
  8. SOLU-MEDROL [Concomitant]
     Indication: VOMITING
     Route: 042
     Dates: start: 20020424, end: 20020424
  9. DECADRON                           /00016001/ [Concomitant]
     Indication: PREMEDICATION
     Route: 048
     Dates: start: 20020423, end: 20020425

REACTIONS (8)
  - CARDIAC ARREST [None]
  - DEHYDRATION [None]
  - DIARRHOEA [None]
  - GENERAL PHYSICAL HEALTH DETERIORATION [None]
  - HYPOGLYCAEMIC COMA [None]
  - PNEUMONIA [None]
  - RENAL FAILURE [None]
  - VOMITING [None]
